FAERS Safety Report 17723080 (Version 1)
Quarter: 2020Q2

REPORT INFORMATION
  Report Type: Spontaneous
  Country: US (occurrence: US)
  Receive Date: 20200428
  Receipt Date: 20200428
  Transmission Date: 20200714
  Serious: No
  Sender: FDA-Public Use
  Company Number: None

PATIENT
  Age: 45 Year
  Sex: Female
  Weight: 105.75 kg

DRUGS (4)
  1. HYDROMORPHONE 4MG [Suspect]
     Active Substance: HYDROMORPHONE HYDROCHLORIDE
     Indication: PAIN
     Dosage: ?          QUANTITY:168 TABLET(S);OTHER FREQUENCY:6 TIMES PER DAY PR;?
     Route: 048
     Dates: start: 20200331, end: 20200428
  2. NEVRO SPINAL CORD STIMULATOR [Concomitant]
  3. GABAPENTIN. [Concomitant]
     Active Substance: GABAPENTIN
  4. BACLOFEN. [Concomitant]
     Active Substance: BACLOFEN

REACTIONS (12)
  - Fatigue [None]
  - Somnolence [None]
  - Anxiety [None]
  - Respiratory distress [None]
  - Sleep apnoea syndrome [None]
  - Coordination abnormal [None]
  - Drug ineffective [None]
  - Therapeutic product effect delayed [None]
  - Asthenia [None]
  - Visual impairment [None]
  - Product substitution issue [None]
  - Snoring [None]

NARRATIVE: CASE EVENT DATE: 20200426
